FAERS Safety Report 24453406 (Version 1)
Quarter: 2024Q4

REPORT INFORMATION
  Report Type: Spontaneous
  Country: US (occurrence: US)
  Receive Date: 20241017
  Receipt Date: 20241017
  Transmission Date: 20250114
  Serious: No
  Sender: SUNOVION
  Company Number: US-SMPA-202407-URV-000998AA

PATIENT
  Age: 72 Year
  Sex: Female

DRUGS (14)
  1. GEMTESA [Suspect]
     Active Substance: VIBEGRON
     Indication: Hypertonic bladder
     Dosage: UNK
     Route: 065
     Dates: start: 202308
  2. GEMTESA [Suspect]
     Active Substance: VIBEGRON
     Dosage: UNK
     Route: 065
     Dates: start: 202310
  3. GEMTESA [Suspect]
     Active Substance: VIBEGRON
     Dosage: UNK
     Route: 065
     Dates: start: 202403
  4. RILUZOLE [Concomitant]
     Active Substance: RILUZOLE
     Indication: Ataxia
     Dosage: UNK
     Dates: start: 202304
  5. RILUZOLE [Concomitant]
     Active Substance: RILUZOLE
     Dosage: UNK
     Dates: start: 202306
  6. RILUZOLE [Concomitant]
     Active Substance: RILUZOLE
     Dosage: UNK
     Dates: start: 202309
  7. RILUZOLE [Concomitant]
     Active Substance: RILUZOLE
     Dosage: UNK
     Dates: start: 202403
  8. RILUZOLE [Concomitant]
     Active Substance: RILUZOLE
     Dosage: UNK
     Dates: start: 202402
  9. RILUZOLE [Concomitant]
     Active Substance: RILUZOLE
     Dosage: UNK
     Dates: start: 202406
  10. DALFAMPRIDINE [Concomitant]
     Active Substance: DALFAMPRIDINE
     Indication: Product used for unknown indication
     Dosage: UNK
     Dates: start: 202404
  11. OMEPRAZOLE [Concomitant]
     Active Substance: OMEPRAZOLE
     Indication: Product used for unknown indication
     Dosage: UNK
     Dates: start: 20240206
  12. FAMOTIDINE [Concomitant]
     Active Substance: FAMOTIDINE
     Indication: Product used for unknown indication
     Dosage: UNK
     Dates: start: 20240515
  13. ATORVASTATIN [Concomitant]
     Active Substance: ATORVASTATIN
     Indication: Product used for unknown indication
  14. SERTRALINE [Concomitant]
     Active Substance: SERTRALINE HYDROCHLORIDE
     Indication: Product used for unknown indication

REACTIONS (1)
  - Alopecia [Unknown]
